FAERS Safety Report 7754037-5 (Version None)
Quarter: 2011Q3

REPORT INFORMATION
  Report Type: 
  Country: None (occurrence: None)
  Receive Date: 20110915
  Receipt Date: 20110913
  Transmission Date: 20111222
  Serious: Yes (Death, Hospitalization, Other)
  Sender: FDA-Public Use
  Company Number: US-AMGEN-USASP2011043259

PATIENT
  Age: 72 Year
  Sex: Male
  Weight: 103.86 kg

DRUGS (14)
  1. NPLATE [Suspect]
     Indication: IDIOPATHIC THROMBOCYTOPENIC PURPURA
     Route: 058
     Dates: start: 20090313, end: 20101124
  2. CORTICOSTEROIDS [Concomitant]
     Indication: IDIOPATHIC THROMBOCYTOPENIC PURPURA
     Dosage: UNK
     Dates: start: 20081215
  3. MAGNESIUM GLUCONATE [Concomitant]
     Dosage: 500 MG, BID
  4. NOVOLOG [Concomitant]
  5. HYDROMORPHONE HCL [Concomitant]
  6. ALLOPURINOL [Concomitant]
     Dosage: 300 MG, QD
  7. LANTUS [Concomitant]
  8. POTASSIUM [Concomitant]
     Dosage: 20 MEQ, QD
  9. PROTONIX [Concomitant]
     Dosage: 40 MG, QD
  10. SYNTHROID [Concomitant]
     Dosage: 125 MUG, QD
  11. PROGRAF [Concomitant]
     Dosage: 0.5 MG, QD
  12. PREDNISONE [Concomitant]
     Dosage: 5 MG, QD
  13. NORVASC [Concomitant]
     Dosage: 5 MG, QD
  14. BUMEX [Concomitant]
     Dosage: 3 MG, BID

REACTIONS (10)
  - DEATH [None]
  - RECTAL HAEMORRHAGE [None]
  - HEPATIC CIRRHOSIS [None]
  - B-CELL LYMPHOMA [None]
  - DIARRHOEA [None]
  - ELECTROPHORESIS PROTEIN ABNORMAL [None]
  - OEDEMA PERIPHERAL [None]
  - CALCULUS URETERIC [None]
  - CONSTIPATION [None]
  - RENAL FAILURE [None]
